FAERS Safety Report 20832621 (Version 2)
Quarter: 2022Q2

REPORT INFORMATION
  Report Type: Spontaneous
  Country: None (occurrence: PT)
  Receive Date: 20220516
  Receipt Date: 20220603
  Transmission Date: 20220721
  Serious: Yes (Other)
  Sender: FDA-Public Use
  Company Number: PT-AKCEA THERAPEUTICS, INC.-2022IS003178

PATIENT
  Sex: Female

DRUGS (10)
  1. TEGSEDI [Suspect]
     Active Substance: INOTERSEN SODIUM
     Indication: Product used for unknown indication
     Route: 065
     Dates: start: 20210302, end: 20220103
  2. DEVICE [Suspect]
     Active Substance: DEVICE
  3. OXCARBAZEPINE [Concomitant]
     Active Substance: OXCARBAZEPINE
     Route: 065
  4. CLONAZEPAM [Concomitant]
     Active Substance: CLONAZEPAM
     Route: 065
  5. ZONISAMIDE [Concomitant]
     Active Substance: ZONISAMIDE
     Route: 065
  6. FOLIC ACID [Concomitant]
     Active Substance: FOLIC ACID
     Route: 065
  7. TRAVOPROST [Concomitant]
     Active Substance: TRAVOPROST
     Route: 065
  8. LOPERAMIDE [Concomitant]
     Active Substance: LOPERAMIDE
     Route: 065
  9. RETINOL [Concomitant]
     Active Substance: RETINOL
     Route: 065
  10. FOLIC ACID [Concomitant]
     Active Substance: FOLIC ACID
     Route: 065

REACTIONS (7)
  - Proteinuria [Unknown]
  - Microalbuminuria [Unknown]
  - Complement factor abnormal [Recovered/Resolved]
  - Blood immunoglobulin M increased [Unknown]
  - Vasculitis [Unknown]
  - Urine protein/creatinine ratio increased [Unknown]
  - Rash maculo-papular [Recovered/Resolved]

NARRATIVE: CASE EVENT DATE: 20210601
